FAERS Safety Report 22256052 (Version 1)
Quarter: 2023Q2

REPORT INFORMATION
  Report Type: Spontaneous
  Country: US (occurrence: None)
  Receive Date: 20230426
  Receipt Date: 20230426
  Transmission Date: 20230721
  Serious: No
  Sender: FDA-Public Use
  Company Number: 2023A077468

PATIENT
  Age: 69 Year
  Sex: Female

DRUGS (3)
  1. CALQUENCE [Suspect]
     Active Substance: ACALABRUTINIB
     Indication: Chemotherapy
     Route: 048
     Dates: start: 20221023
  2. DUPIXENT [Suspect]
     Active Substance: DUPILUMAB
     Indication: Dermatitis atopic
     Dosage: 600.0MG UNKNOWN
  3. DUPIXENT [Suspect]
     Active Substance: DUPILUMAB
     Indication: Dermatitis atopic
     Dosage: 300 MG, EVERY OTHER WEEK UNKNOWN

REACTIONS (14)
  - Purulent discharge [Recovered/Resolved]
  - Erythema [Recovered/Resolved]
  - Skin ulcer [Unknown]
  - Facial pain [Unknown]
  - Lymphadenopathy [Unknown]
  - Skin burning sensation [Recovered/Resolved]
  - Acne [Recovered/Resolved]
  - Skin warm [Recovered/Resolved]
  - Abdominal discomfort [Recovered/Resolved]
  - Dermatitis atopic [Unknown]
  - Inappropriate schedule of product administration [Unknown]
  - Off label use [Unknown]
  - Drug ineffective [Unknown]
  - Inability to afford medication [Unknown]
